FAERS Safety Report 12809343 (Version 2)
Quarter: 2017Q1

REPORT INFORMATION
  Report Type: Spontaneous
  Country: US (occurrence: US)
  Receive Date: 20161004
  Receipt Date: 20170127
  Transmission Date: 20170428
  Serious: Yes (Hospitalization)
  Sender: FDA-Public Use
  Company Number: US-ASTRAZENECA-2016SF02809

PATIENT
  Age: 70 Year
  Sex: Female
  Weight: 63.8 kg

DRUGS (34)
  1. RIFAMPICIN [Suspect]
     Active Substance: RIFAMPIN
     Indication: DRUG INTERACTION
     Dosage: DAILY
     Route: 048
  2. FLONASE [Concomitant]
     Active Substance: FLUTICASONE PROPIONATE
     Indication: NASAL DRYNESS
     Dates: start: 20151130
  3. GRISEOFULVIN. [Concomitant]
     Active Substance: GRISEOFULVIN
     Indication: RASH PUSTULAR
     Dates: start: 20151221
  4. DOXYCYCLINE. [Concomitant]
     Active Substance: DOXYCYCLINE
     Indication: RASH
     Dates: start: 20160913, end: 20160914
  5. ITRACONAZOLE. [Suspect]
     Active Substance: ITRACONAZOLE
     Indication: DRUG INTERACTION
     Dosage: DAILY
     Route: 048
  6. ATRAX [Concomitant]
     Indication: HYPERSENSITIVITY
     Dates: start: 20160816
  7. ONDANSETRON [Concomitant]
     Active Substance: ONDANSETRON
     Indication: NAUSEA
     Dates: start: 20160913
  8. VANCOMYCIN [Concomitant]
     Active Substance: VANCOMYCIN
     Indication: INFECTION
     Dates: start: 20160913, end: 20160913
  9. FLUTICASONE PROPIONATE. [Concomitant]
     Active Substance: FLUTICASONE PROPIONATE
     Indication: NASAL DRYNESS
     Dates: start: 20160913, end: 20160914
  10. ATRAX [Concomitant]
  11. NEOSPORIN [Concomitant]
     Active Substance: BACITRACIN ZINC\NEOMYCIN SULFATE\POLYMYXIN B SULFATE
     Indication: NASAL DRYNESS
     Dates: start: 20151110
  12. FLUTICASONE PROPIONATE. [Concomitant]
     Active Substance: FLUTICASONE PROPIONATE
     Indication: NASAL DRYNESS
     Dates: start: 20151130
  13. ALPRAZOLAM. [Concomitant]
     Active Substance: ALPRAZOLAM
     Dosage: AS REQUIRED TAKEN ONLY AROUND ECG S PERFORMED
  14. PF-06747775 [Suspect]
     Active Substance: INVESTIGATIONAL PRODUCT
     Indication: NON-SMALL CELL LUNG CANCER
     Dosage: 100 MG, ONCE DAILY CONTINUOUS (21 DAY CYCLES)
     Route: 048
     Dates: start: 20151021, end: 20160913
  15. NALOXONE [Concomitant]
     Active Substance: NALOXONE
     Indication: PAIN
     Dates: start: 20160913, end: 20160914
  16. LANSOPRAZOLE. [Concomitant]
     Active Substance: LANSOPRAZOLE
     Indication: NAUSEA
     Dates: start: 20160913, end: 20160914
  17. FLUTICASONE PROPIONATE. [Concomitant]
     Active Substance: FLUTICASONE PROPIONATE
     Indication: MULTIPLE ALLERGIES
     Dates: start: 20151130
  18. PIPERACILLIN [Concomitant]
     Active Substance: PIPERACILLIN
     Indication: INFECTION
     Dates: start: 20160913, end: 20160913
  19. DOXYCYCLINE. [Concomitant]
     Active Substance: DOXYCYCLINE
     Indication: INFECTION
     Dates: start: 20160913, end: 20160914
  20. DOXYCYCLINE. [Concomitant]
     Active Substance: DOXYCYCLINE
     Indication: INFECTION
     Dates: start: 20151230
  21. ACETAMINOPHEN. [Concomitant]
     Active Substance: ACETAMINOPHEN
     Indication: PAIN
     Dates: start: 20160912, end: 20160914
  22. SODIUM CHLORIDE. [Concomitant]
     Active Substance: SODIUM CHLORIDE
     Indication: HYDRAEMIA
     Dosage: 0.9%
     Dates: start: 20160913, end: 20160914
  23. FEXOFENADINE [Concomitant]
     Active Substance: FEXOFENADINE\FEXOFENADINE HYDROCHLORIDE
     Indication: HYPERSENSITIVITY
     Dates: start: 20160913, end: 20160914
  24. INFLUENZA VACCINE [Concomitant]
     Active Substance: INFLUENZA VIRUS VACCINE
     Dosage: NIGHT DOSE INJECTION
     Dates: start: 20160913, end: 20160913
  25. CEPHALEXIN. [Concomitant]
     Active Substance: CEPHALEXIN
     Indication: INFECTION
     Dates: start: 20160913
  26. CEFTRIAXONE. [Concomitant]
     Active Substance: CEFTRIAXONE
     Indication: INFECTION
     Dates: start: 20160913, end: 20160914
  27. ESOMEPRAZOLE [Suspect]
     Active Substance: ESOMEPRAZOLE
     Indication: DRUG INTERACTION
     Route: 048
  28. FLONASE [Concomitant]
     Active Substance: FLUTICASONE PROPIONATE
     Indication: HYPERSENSITIVITY
     Dates: start: 20151130
  29. SULFAMETHOXAZOLE TRIMETHOPRIM [Concomitant]
     Active Substance: SULFAMETHOXAZOLE\TRIMETHOPRIM
     Indication: INFECTION
     Dates: start: 20160913
  30. HEPARIN [Concomitant]
     Active Substance: HEPARIN SODIUM
     Dates: start: 20160913, end: 20160914
  31. IPRATROPIUM [Concomitant]
     Active Substance: IPRATROPIUM
     Indication: MULTIPLE ALLERGIES
     Dates: start: 20160913, end: 20160914
  32. SILDENAFIL CITRATE. [Suspect]
     Active Substance: SILDENAFIL CITRATE
     Indication: DRUG INTERACTION
     Route: 048
  33. DOXYCYCLINE. [Concomitant]
     Active Substance: DOXYCYCLINE
     Indication: RASH
     Dates: start: 20151230
  34. FLUTICASONE PROPIONATE. [Concomitant]
     Active Substance: FLUTICASONE PROPIONATE
     Indication: MULTIPLE ALLERGIES
     Dates: start: 20160913, end: 20160914

REACTIONS (2)
  - Pyrexia [Recovered/Resolved]
  - Leukocytosis [Recovered/Resolved]

NARRATIVE: CASE EVENT DATE: 20160912
